FAERS Safety Report 12321473 (Version 2)
Quarter: 2016Q2

REPORT INFORMATION
  Report Type: Report from Study
  Country: GB (occurrence: GB)
  Receive Date: 20160502
  Receipt Date: 20160505
  Transmission Date: 20160815
  Serious: Yes (Hospitalization)
  Sender: FDA-Public Use
  Company Number: PHHO2016GB003059

PATIENT
  Age: 68 Year
  Sex: Male
  Weight: 117.2 kg

DRUGS (4)
  1. LOSARTAN. [Concomitant]
     Active Substance: LOSARTAN
     Indication: HYPERTENSION
     Dosage: 100/25 MG, OD
     Route: 065
     Dates: start: 2011
  2. LBH589 [Suspect]
     Active Substance: PANOBINOSTAT
     Indication: MYELOFIBROSIS
     Dosage: 15 MG, QW3
     Route: 048
     Dates: start: 20140115, end: 20160221
  3. CIPROFLOXACIN. [Concomitant]
     Active Substance: CIPROFLOXACIN
     Indication: LOWER RESPIRATORY TRACT INFECTION
     Dosage: 500 MG, BID
     Route: 065
     Dates: start: 20160209, end: 20160216
  4. INC424 [Suspect]
     Active Substance: RUXOLITINIB
     Indication: MYELOFIBROSIS
     Dosage: 10 MG, BID
     Route: 048
     Dates: start: 20140115

REACTIONS (3)
  - H1N1 influenza [Recovered/Resolved]
  - Lung infection [Recovered/Resolved]
  - Bacteraemia [Recovered/Resolved]

NARRATIVE: CASE EVENT DATE: 20160219
